FAERS Safety Report 10969575 (Version 2)
Quarter: 2015Q4

REPORT INFORMATION
  Report Type: Spontaneous
  Country: US (occurrence: US)
  Receive Date: 20150331
  Receipt Date: 20151126
  Transmission Date: 20160304
  Serious: Yes (Hospitalization)
  Sender: FDA-Public Use
  Company Number: US-BIOGENIDEC-2015BI040072

PATIENT
  Age: 65 Year
  Sex: Female

DRUGS (4)
  1. ZYRTEC ALLERGY CHILDRENS [Concomitant]
  2. AVONEX [Suspect]
     Active Substance: INTERFERON BETA-1A
     Indication: MULTIPLE SCLEROSIS
     Route: 030
  3. DONEPEZIL HCL [Concomitant]
     Active Substance: DONEPEZIL HYDROCHLORIDE
  4. PRIMIDONE. [Concomitant]
     Active Substance: PRIMIDONE

REACTIONS (4)
  - Cystitis [Unknown]
  - Pneumonia [Unknown]
  - Decreased immune responsiveness [Unknown]
  - Hypothermia [Unknown]
